FAERS Safety Report 8504060-8 (Version None)
Quarter: 2012Q3

REPORT INFORMATION
  Report Type: 
  Country: None (occurrence: None)
  Receive Date: 20120711
  Receipt Date: 20120709
  Transmission Date: 20120928
  Serious: Yes (Other)
  Sender: FDA-Public Use
  Company Number: PHEH2012US013497

PATIENT
  Sex: Female

DRUGS (2)
  1. EXTAVIA [Suspect]
     Dosage: 0.50 ML, QOD
  2. EXTAVIA [Suspect]
     Indication: MULTIPLE SCLEROSIS
     Dosage: 0.125 MG, QOD
     Route: 058
     Dates: start: 20120612

REACTIONS (2)
  - OPTIC NEURITIS [None]
  - FEELING ABNORMAL [None]
